FAERS Safety Report 9120841 (Version 2)
Quarter: 2013Q1

REPORT INFORMATION
  Report Type: Spontaneous
  Country: AT (occurrence: AT)
  Receive Date: 20130226
  Receipt Date: 20130307
  Transmission Date: 20140127
  Serious: Yes (Other)
  Sender: FDA-Public Use
  Company Number: AT-ROCHE-1193037

PATIENT
  Age: 69 Year
  Sex: Female

DRUGS (22)
  1. HERCEPTIN [Suspect]
     Indication: PRODUCT USED FOR UNKNOWN INDICATION
     Dosage: 6MG/KG/CYCLE
     Route: 065
     Dates: start: 20070705, end: 20071119
  2. HERCEPTIN [Suspect]
     Route: 065
  3. HERCEPTIN [Suspect]
     Dosage: 6 CYCLES, 4MG/KG LOADING DOSE, FOLLOWED BY 2MG/KG
     Route: 065
     Dates: start: 20110310, end: 20110830
  4. HERCEPTIN [Suspect]
     Route: 065
     Dates: start: 20120628, end: 20121129
  5. XELODA [Suspect]
     Indication: PRODUCT USED FOR UNKNOWN INDICATION
     Route: 065
     Dates: start: 20101013, end: 20110130
  6. BONDRONAT [Suspect]
     Indication: PRODUCT USED FOR UNKNOWN INDICATION
     Dosage: 6 MG Q3WEEKS
     Route: 048
     Dates: start: 20071220, end: 20071221
  7. BONDRONAT [Suspect]
     Route: 048
     Dates: start: 20101013, end: 20110130
  8. TAXOTERE [Suspect]
     Indication: PRODUCT USED FOR UNKNOWN INDICATION
     Dosage: 75MG/M2/CYCLE
     Route: 065
  9. ARIMIDEX [Suspect]
     Indication: PRODUCT USED FOR UNKNOWN INDICATION
     Dosage: 1 TBL
     Route: 065
  10. AROMASIN [Suspect]
     Indication: PRODUCT USED FOR UNKNOWN INDICATION
     Route: 065
     Dates: start: 20091222, end: 20100323
  11. FEMARA [Suspect]
     Indication: PRODUCT USED FOR UNKNOWN INDICATION
     Route: 065
  12. FASLODEX [Suspect]
     Indication: PRODUCT USED FOR UNKNOWN INDICATION
     Dosage: 2X250 MG/5 ML
     Route: 030
     Dates: start: 20100701, end: 20100922
  13. GEMZAR [Suspect]
     Indication: PRODUCT USED FOR UNKNOWN INDICATION
     Route: 065
     Dates: start: 20110310, end: 20110830
  14. NAVELBINE [Suspect]
     Indication: PRODUCT USED FOR UNKNOWN INDICATION
     Route: 065
     Dates: start: 20110921, end: 20120405
  15. MYOCET [Suspect]
     Indication: PRODUCT USED FOR UNKNOWN INDICATION
     Dosage: 20% DOSIS REDUCTION
     Route: 065
  16. CYCLOPHOSPHAMID [Suspect]
     Indication: PRODUCT USED FOR UNKNOWN INDICATION
     Route: 065
     Dates: start: 20070412, end: 20070523
  17. CYCLOPHOSPHAMID [Suspect]
     Route: 065
     Dates: start: 20120425, end: 20120607
  18. LAPATINIB [Suspect]
     Indication: PRODUCT USED FOR UNKNOWN INDICATION
     Route: 065
     Dates: start: 20101013, end: 20110130
  19. TAXOL [Suspect]
     Indication: PRODUCT USED FOR UNKNOWN INDICATION
     Route: 065
     Dates: start: 20120628, end: 20121129
  20. TAMOXIFEN [Concomitant]
     Route: 065
     Dates: start: 19990402, end: 20040623
  21. EPIRUBICIN [Concomitant]
     Route: 065
  22. 5-FU [Concomitant]
     Route: 065
     Dates: start: 20070523

REACTIONS (3)
  - Metastases to bone [Unknown]
  - Disease recurrence [Unknown]
  - Disease progression [Unknown]
